FAERS Safety Report 8303638-4 (Version None)
Quarter: 2012Q2

REPORT INFORMATION
  Report Type: 
  Country: None (occurrence: None)
  Receive Date: 20120423
  Receipt Date: 20120418
  Transmission Date: 20120825
  Serious: Yes (Other)
  Sender: FDA-Public Use
  Company Number: FI-PFIZER INC-2012095686

PATIENT
  Age: 77 Year
  Sex: Male

DRUGS (2)
  1. NOREPINEPHRINE BITARTRATE [Concomitant]
  2. REVATIO [Suspect]
     Indication: PULMONARY HYPERTENSION
     Dosage: 0.8 MG/L, UNK
     Route: 042
     Dates: end: 20120101

REACTIONS (2)
  - HYPOTENSION [None]
  - RENAL FAILURE [None]
